FAERS Safety Report 13582271 (Version 1)
Quarter: 2017Q2

REPORT INFORMATION
  Report Type: Spontaneous
  Country: US (occurrence: US)
  Receive Date: 20170525
  Receipt Date: 20170525
  Transmission Date: 20170830
  Serious: No
  Sender: FDA-Public Use
  Company Number: US-ALARA PHARMACEUTICAL CORPORATION-2021216

PATIENT
  Sex: Female

DRUGS (7)
  1. LEVO-T [Suspect]
     Active Substance: LEVOTHYROXINE SODIUM
     Indication: THYROID DISORDER
  2. CALCIUM [Interacting]
     Active Substance: CALCIUM
  3. AZOPT [Interacting]
     Active Substance: BRINZOLAMIDE
     Route: 047
  4. VITAMIN D3 [Interacting]
     Active Substance: CHOLECALCIFEROL
  5. PRAVASTATIN. [Interacting]
     Active Substance: PRAVASTATIN
  6. HYDROCHLORTHIAZIDE [Interacting]
     Active Substance: HYDROCHLOROTHIAZIDE
  7. VITAMIN B12 [Interacting]
     Active Substance: CYANOCOBALAMIN

REACTIONS (4)
  - Drug interaction [Unknown]
  - Throat tightness [Unknown]
  - Fatigue [Unknown]
  - Hyperhidrosis [Unknown]
